FAERS Safety Report 24655567 (Version 1)
Quarter: 2024Q4

REPORT INFORMATION
  Report Type: Spontaneous
  Country: US (occurrence: US)
  Receive Date: 20241123
  Receipt Date: 20241123
  Transmission Date: 20250114
  Serious: No
  Sender: ABBVIE
  Company Number: US-ABBVIE-6004932

PATIENT
  Age: 86 Year
  Sex: Female

DRUGS (1)
  1. RESTASIS [Suspect]
     Active Substance: CYCLOSPORINE
     Indication: Dry eye
     Dosage: 1 DROP EACH EYE?0.5MG/ML
     Route: 047

REACTIONS (3)
  - Eye irritation [Unknown]
  - Vision blurred [Not Recovered/Not Resolved]
  - Product container issue [Not Recovered/Not Resolved]
